FAERS Safety Report 7278911-1 (Version None)
Quarter: 2011Q1

REPORT INFORMATION
  Report Type: 
  Country: None (occurrence: None)
  Receive Date: 20110207
  Receipt Date: 20110203
  Transmission Date: 20110831
  Serious: Yes (Disabling, Other)
  Sender: FDA-Public Use
  Company Number: GB-ABBOTT-11P-167-0696564-00

PATIENT
  Sex: Female

DRUGS (1)
  1. HUMIRA [Suspect]
     Indication: PSORIASIS
     Route: 058

REACTIONS (9)
  - GAIT DISTURBANCE [None]
  - HAEMATURIA [None]
  - ARTHRALGIA [None]
  - ANTINUCLEAR ANTIBODY INCREASED [None]
  - PAPULE [None]
  - HYPERHIDROSIS [None]
  - VITAMIN D ABNORMAL [None]
  - MULTIPLE SCLEROSIS [None]
  - PYREXIA [None]
